FAERS Safety Report 23500868 (Version 2)
Quarter: 2024Q2

REPORT INFORMATION
  Report Type: Report from Study
  Country: AT (occurrence: AT)
  Receive Date: 20240208
  Receipt Date: 20240401
  Transmission Date: 20240716
  Serious: Yes (Death)
  Sender: FDA-Public Use
  Company Number: AT-ROCHE-2760834

PATIENT
  Age: 63 Year
  Sex: Female
  Weight: 55 kg

DRUGS (47)
  1. AROMASIN [Suspect]
     Active Substance: EXEMESTANE
     Indication: Breast cancer
     Dosage: 25 MG, 1X/DAY
     Route: 048
     Dates: start: 20180719, end: 20190507
  2. CAPECITABINE [Suspect]
     Active Substance: CAPECITABINE
     Indication: Breast cancer
     Route: 048
     Dates: start: 20200326, end: 20200430
  3. CAPECITABINE [Suspect]
     Active Substance: CAPECITABINE
     Dosage: FREQ:.5 D;
     Route: 048
     Dates: start: 20200512, end: 20200519
  4. FASLODEX [Suspect]
     Active Substance: FULVESTRANT
     Indication: Breast cancer
     Dosage: FREQ:2 WK;
     Route: 030
     Dates: start: 20201029, end: 20201111
  5. FASLODEX [Suspect]
     Active Substance: FULVESTRANT
     Dosage: FREQ:4 WK;
     Route: 030
     Dates: start: 20201125, end: 20210110
  6. ONTRUZANT [Suspect]
     Active Substance: TRASTUZUMAB-DTTB
     Indication: Breast cancer
     Dosage: 424 MG, EVERY 3 WEEKS
     Route: 042
     Dates: start: 20201109, end: 20201109
  7. ONTRUZANT [Suspect]
     Active Substance: TRASTUZUMAB-DTTB
     Dosage: 318 MG, EVERY 3 WEEKS
     Route: 042
     Dates: start: 20201130, end: 20201221
  8. ONTRUZANT [Suspect]
     Active Substance: TRASTUZUMAB-DTTB
     Dosage: 324 MG, EVERY 3 WEEKS
     Route: 042
     Dates: start: 20190613, end: 20190704
  9. ONTRUZANT [Suspect]
     Active Substance: TRASTUZUMAB-DTTB
     Dosage: 336 MG, EVERY 3 WEEKS
     Route: 042
     Dates: start: 20181129, end: 20190516
  10. HERCEPTIN [Suspect]
     Active Substance: TRASTUZUMAB
     Indication: Breast cancer
     Dosage: 336 MG, EVERY 3 WEEKS
     Route: 042
     Dates: start: 20180830, end: 20181105
  11. HERCEPTIN [Suspect]
     Active Substance: TRASTUZUMAB
     Dosage: 330 MG, EVERY 3 WEEKS
     Route: 042
     Dates: start: 20180809, end: 20180809
  12. HERCEPTIN [Suspect]
     Active Substance: TRASTUZUMAB
     Dosage: 440 MG, EVERY 3 WEEKS
     Route: 042
     Dates: start: 20180719, end: 20180719
  13. TYKERB [Suspect]
     Active Substance: LAPATINIB DITOSYLATE
     Indication: Breast cancer
     Dosage: 1250 MG, 1X/DAY
     Route: 048
     Dates: start: 20200326, end: 20200723
  14. TYKERB [Suspect]
     Active Substance: LAPATINIB DITOSYLATE
     Dosage: 1000 MG, 1X/DAY
     Route: 048
     Dates: start: 20200829, end: 20201022
  15. FEMARA [Suspect]
     Active Substance: LETROZOLE
     Indication: Breast cancer
     Dosage: MOST RECENT DOSE PRIOR TO THE EVENT: 12MAY2020
     Route: 048
     Dates: start: 20190508, end: 20190819
  16. FEMARA [Suspect]
     Active Substance: LETROZOLE
     Dosage: 2.5 MG, 1X/DAY
     Route: 048
     Dates: start: 20200512, end: 20201022
  17. PERJETA [Suspect]
     Active Substance: PERTUZUMAB
     Indication: Breast cancer
     Dosage: 420 MG, EVERY 3 WEEKS
     Route: 042
     Dates: start: 20180809, end: 20190704
  18. PERJETA [Suspect]
     Active Substance: PERTUZUMAB
     Dosage: 840 MG, EVERY 3 WEEKS
     Route: 042
     Dates: start: 20180719, end: 20180719
  19. ABEMACICLIB [Suspect]
     Active Substance: ABEMACICLIB
     Indication: Breast cancer
     Dosage: FREQ:.5 D;
     Route: 048
     Dates: start: 20201029, end: 20201211
  20. KADCYLA [Suspect]
     Active Substance: ADO-TRASTUZUMAB EMTANSINE
     Indication: Breast cancer
     Dosage: 143.1 MG, EVERY 3 WEEKS
     Route: 042
     Dates: start: 20191003, end: 20200213
  21. KADCYLA [Suspect]
     Active Substance: ADO-TRASTUZUMAB EMTANSINE
     Dosage: 201.6 MG, EVERY 3 WEEKS
     Route: 042
     Dates: start: 20190829, end: 20190829
  22. NAVELBINE [Suspect]
     Active Substance: VINORELBINE TARTRATE
     Indication: Breast cancer
     Dosage: 50 MG
     Route: 048
     Dates: start: 20180719, end: 20181130
  23. NAVELBINE [Suspect]
     Active Substance: VINORELBINE TARTRATE
     Dosage: 50 MG
     Route: 048
     Dates: start: 20181210, end: 20190206
  24. NAVELBINE [Suspect]
     Active Substance: VINORELBINE TARTRATE
     Dosage: 50 MG, EVERY 3 WEEKS
     Route: 048
     Dates: start: 20190206, end: 20190705
  25. AMOXICILLIN\CLAVULANATE POTASSIUM [Concomitant]
     Active Substance: AMOXICILLIN\CLAVULANATE POTASSIUM
  26. MAGNESIUM SUCCINATE [Concomitant]
     Dates: start: 20190819
  27. DEXPANTHENOL [Concomitant]
     Active Substance: DEXPANTHENOL
     Indication: Conjunctivitis
     Dates: start: 20190221
  28. DIMENHYDRINATE [Concomitant]
     Active Substance: DIMENHYDRINATE
     Indication: Vertigo
     Dates: start: 20191218
  29. ACETAMINOPHEN\CAFFEINE\PROPYPHENAZONE [Concomitant]
     Active Substance: ACETAMINOPHEN\CAFFEINE\PROPYPHENAZONE
     Dates: start: 20180727
  30. IMODIUM [Concomitant]
     Active Substance: LOPERAMIDE HYDROCHLORIDE
     Indication: Diarrhoea
     Dates: start: 20180731
  31. PREDNISOLONE [Concomitant]
     Active Substance: PREDNISOLONE
  32. RANITIDINE HYDROCHLORIDE [Concomitant]
     Active Substance: RANITIDINE HYDROCHLORIDE
  33. ZOFRAN [Concomitant]
     Active Substance: ONDANSETRON HYDROCHLORIDE
     Indication: Nausea
     Dates: start: 20190919
  34. DEXABENE [Concomitant]
  35. HALDOL [Concomitant]
     Active Substance: HALOPERIDOL
  36. KYTRIL [Concomitant]
     Active Substance: GRANISETRON HYDROCHLORIDE
  37. ESOMEPRAZOLE [Concomitant]
     Active Substance: ESOMEPRAZOLE
     Indication: Dysphagia
     Dates: start: 20200207
  38. MORPHINE [Concomitant]
     Active Substance: MORPHINE
  39. EUTHYROX [Concomitant]
     Active Substance: LEVOTHYROXINE SODIUM
  40. ORNITHINE ASPARTATE [Concomitant]
     Active Substance: ORNITHINE ASPARTATE
  41. KONAKION [Concomitant]
     Active Substance: PHYTONADIONE
  42. POLYETHYLENE GLYCOLS [Concomitant]
     Active Substance: POLYETHYLENE GLYCOLS
     Dates: start: 20180719
  43. DEXAMETHASONE [Concomitant]
     Active Substance: DEXAMETHASONE
     Indication: Vertigo
     Dates: start: 20191114
  44. DIMETHINDENE [Concomitant]
     Active Substance: DIMETHINDENE
  45. SUCRALFATE [Concomitant]
     Active Substance: SUCRALFATE
     Indication: Abdominal pain
     Dates: start: 20200512
  46. XGEVA [Concomitant]
     Active Substance: DENOSUMAB
     Dates: start: 20181215
  47. HYDROMORPHONE HYDROCHLORIDE [Concomitant]
     Active Substance: HYDROMORPHONE HYDROCHLORIDE
     Dates: start: 20180727

REACTIONS (1)
  - Hepatic failure [Fatal]

NARRATIVE: CASE EVENT DATE: 20201130
